FAERS Safety Report 21239617 (Version 1)
Quarter: 2022Q3

REPORT INFORMATION
  Report Type: Spontaneous
  Country: US (occurrence: None)
  Receive Date: 20220820
  Receipt Date: 20220820
  Transmission Date: 20221027
  Serious: No
  Sender: FDA-Public Use
  Company Number: None

PATIENT
  Age: 87 Year
  Sex: Male
  Weight: 74.25 kg

DRUGS (5)
  1. AMIODARONE [Suspect]
     Active Substance: AMIODARONE
     Indication: Cardiac failure congestive
     Dosage: OTHER QUANTITY : 1 TABLET(S);?
     Route: 048
     Dates: end: 20220817
  2. ELQUIS [Concomitant]
  3. POTASSIUM [Concomitant]
  4. MIDORINE [Concomitant]
  5. FUROSEMIDE [Concomitant]
     Active Substance: FUROSEMIDE

REACTIONS (13)
  - Hallucination [None]
  - Vision blurred [None]
  - Dyskinesia [None]
  - Muscular weakness [None]
  - Muscular weakness [None]
  - Diplopia [None]
  - Nervousness [None]
  - Peripheral swelling [None]
  - Peripheral swelling [None]
  - Dyspnoea [None]
  - Irritability [None]
  - Hallucinations, mixed [None]
  - Taste disorder [None]

NARRATIVE: CASE EVENT DATE: 20220708
